FAERS Safety Report 5167725-4 (Version None)
Quarter: 2006Q4

REPORT INFORMATION
  Report Type: 
  Country: None (occurrence: None)
  Receive Date: 20061204
  Receipt Date: 20061204
  Transmission Date: 20070319
  Serious: No
  Sender: FDA-Public Use
  Company Number: None

PATIENT
  Sex: Male
  Weight: 82.6 kg

DRUGS (3)
  1. CASODEX [Suspect]
     Dosage: 6300 MG
  2. LEUPROLIDE ACETATE [Suspect]
     Dosage: 45 MG
  3. HYDROCHLOROTHIAZIDE [Concomitant]

REACTIONS (6)
  - DEPRESSION [None]
  - FEELING ABNORMAL [None]
  - NEOPLASM MALIGNANT [None]
  - ROAD TRAFFIC ACCIDENT [None]
  - SEDATION [None]
  - SUICIDAL IDEATION [None]
